FAERS Safety Report 14746230 (Version 2)
Quarter: 2018Q2

REPORT INFORMATION
  Report Type: Report from Study
  Country: US (occurrence: US)
  Receive Date: 20180411
  Receipt Date: 20180503
  Transmission Date: 20180711
  Serious: Yes (Other)
  Sender: FDA-Public Use
  Company Number: US-B.I. PHARMACEUTICALS,INC./RIDGEFIELD-2018-BI-019377

PATIENT
  Sex: Male

DRUGS (1)
  1. GILOTRIF [Suspect]
     Active Substance: AFATINIB
     Indication: LUNG NEOPLASM MALIGNANT
     Route: 048

REACTIONS (16)
  - Dry eye [Not Recovered/Not Resolved]
  - Peripheral swelling [Not Recovered/Not Resolved]
  - Chromaturia [Not Recovered/Not Resolved]
  - Faeces discoloured [Not Recovered/Not Resolved]
  - Blood urine present [Recovered/Resolved]
  - Ocular icterus [Not Recovered/Not Resolved]
  - Pruritus [Unknown]
  - Scleral discolouration [Recovered/Resolved]
  - Vision blurred [Recovered/Resolved]
  - Hypoacusis [Recovered/Resolved]
  - Dyspnoea [Recovered/Resolved]
  - Mouth ulceration [Recovered/Resolved]
  - Rash macular [Recovered/Resolved]
  - Diarrhoea [Not Recovered/Not Resolved]
  - Dry skin [Unknown]
  - Stomatitis [Unknown]
